FAERS Safety Report 19144255 (Version 2)
Quarter: 2021Q2

REPORT INFORMATION
  Report Type: Spontaneous
  Country: JP (occurrence: JP)
  Receive Date: 20210416
  Receipt Date: 20210504
  Transmission Date: 20210717
  Serious: No
  Sender: FDA-Public Use
  Company Number: JP-GLAXOSMITHKLINE-JP2021081229

PATIENT
  Age: 75 Year
  Sex: Male

DRUGS (8)
  1. TRELEGY ELLIPTA [Suspect]
     Active Substance: FLUTICASONE FUROATE\UMECLIDINIUM BROMIDE\VILANTEROL TRIFENATATE
     Indication: DYSPNOEA
     Dosage: 100 UG
     Route: 055
     Dates: start: 202104
  2. AMBROXOL HYDROCHLORIDE TABLET [Concomitant]
     Dosage: 15 MG, TID
  3. BISOPROLOL FUMARATE TABLET [Concomitant]
     Dosage: 2.5 MG, QD
  4. TRELEGY ELLIPTA [Suspect]
     Active Substance: FLUTICASONE FUROATE\UMECLIDINIUM BROMIDE\VILANTEROL TRIFENATATE
     Indication: CHRONIC OBSTRUCTIVE PULMONARY DISEASE
     Dosage: 100 ?G, QD
     Route: 055
     Dates: start: 20210409, end: 20210409
  5. CLARITHROMYCIN TABLETS [Concomitant]
     Active Substance: CLARITHROMYCIN
     Dosage: 200 MG, QD
  6. ULTIBRO [Concomitant]
     Active Substance: GLYCOPYRRONIUM\INDACATEROL
     Dosage: UNK
     Dates: end: 20210408
  7. CARBOCISTEINE TABLETS [Suspect]
     Active Substance: CARBOCYSTEINE
     Dosage: 500 MG, TID
     Dates: start: 202104
  8. XARELTO TABLETS [Concomitant]
     Dosage: 15 MG, QD

REACTIONS (1)
  - Oedema peripheral [Unknown]

NARRATIVE: CASE EVENT DATE: 20210410
